FAERS Safety Report 19673697 (Version 1)
Quarter: 2021Q3

REPORT INFORMATION
  Report Type: Spontaneous
  Country: US (occurrence: US)
  Receive Date: 20210807
  Receipt Date: 20210807
  Transmission Date: 20211014
  Serious: No
  Sender: FDA-Public Use
  Company Number: None

PATIENT
  Age: 68 Year
  Sex: Female
  Weight: 90 kg

DRUGS (2)
  1. VIT D3 / K2 [Concomitant]
  2. XIIDRA [Suspect]
     Active Substance: LIFITEGRAST
     Indication: DRY EYE
     Dosage: ?          QUANTITY:1 DROP(S);?
     Route: 047
     Dates: start: 20210721, end: 20210730

REACTIONS (2)
  - Eye pain [None]
  - Lacrimation increased [None]

NARRATIVE: CASE EVENT DATE: 20210730
